FAERS Safety Report 25176266 (Version 2)
Quarter: 2025Q2

REPORT INFORMATION
  Report Type: Spontaneous
  Country: SK (occurrence: SK)
  Receive Date: 20250409
  Receipt Date: 20250411
  Transmission Date: 20250716
  Serious: Yes (Death, Other)
  Sender: NOVARTIS
  Company Number: SK-002147023-NVSC2025SK056417

PATIENT
  Age: 66 Year
  Sex: Male

DRUGS (1)
  1. IMATINIB [Suspect]
     Active Substance: IMATINIB
     Indication: Chronic myeloid leukaemia
     Route: 065
     Dates: start: 2006

REACTIONS (2)
  - Myelofibrosis [Fatal]
  - Anaemia [Unknown]

NARRATIVE: CASE EVENT DATE: 20140101
